FAERS Safety Report 19047947 (Version 1)
Quarter: 2021Q1

REPORT INFORMATION
  Report Type: Spontaneous
  Country: BE (occurrence: BE)
  Receive Date: 20210323
  Receipt Date: 20210323
  Transmission Date: 20210420
  Serious: Yes (Other)
  Sender: FDA-Public Use
  Company Number: BE-ROCHE-2794912

PATIENT
  Sex: Female

DRUGS (1)
  1. XOLAIR [Suspect]
     Active Substance: OMALIZUMAB
     Indication: PRURITUS
     Dosage: UNK (MONTHLY TO PERIODS OF EVERY SIX WEEKS)
     Route: 065
     Dates: start: 201608

REACTIONS (12)
  - Feeling drunk [Unknown]
  - Malaise [Unknown]
  - Off label use [Unknown]
  - Pharyngeal swelling [Unknown]
  - Syncope [Unknown]
  - Tachycardia [Unknown]
  - Heart valve incompetence [Unknown]
  - Fatigue [Unknown]
  - Dyspnoea [Unknown]
  - Pseudoallergic reaction [Unknown]
  - Palpitations [Unknown]
  - Cardiac discomfort [Unknown]
